FAERS Safety Report 11702798 (Version 2)
Quarter: 2016Q2

REPORT INFORMATION
  Report Type: Report from Study
  Country: US (occurrence: US)
  Receive Date: 20151105
  Receipt Date: 20160614
  Transmission Date: 20160815
  Serious: Yes (Hospitalization)
  Sender: FDA-Public Use
  Company Number: US-EISAI MEDICAL RESEARCH-EC-2015-010641

PATIENT
  Age: 77 Year
  Sex: Male
  Weight: 68.5 kg

DRUGS (26)
  1. XANAX [Suspect]
     Active Substance: ALPRAZOLAM
     Indication: PRODUCT USED FOR UNKNOWN INDICATION
     Dosage: UNKNOWN
     Route: 065
     Dates: start: 201510
  2. ENALAPRIL MALEATE. [Concomitant]
     Active Substance: ENALAPRIL MALEATE
  3. METOPROLOL TARTRATE. [Concomitant]
     Active Substance: METOPROLOL TARTRATE
  4. CLONIDINE. [Concomitant]
     Active Substance: CLONIDINE
  5. FLOMAX [Concomitant]
     Active Substance: TAMSULOSIN HYDROCHLORIDE
  6. AMOXICILLIN. [Concomitant]
     Active Substance: AMOXICILLIN
  7. LENVIMA [Suspect]
     Active Substance: LENVATINIB
     Route: 048
     Dates: start: 20151029
  8. FENTANYL. [Concomitant]
     Active Substance: FENTANYL
  9. ASPIRIN. [Concomitant]
     Active Substance: ASPIRIN
  10. FERROUS SULFATE. [Concomitant]
     Active Substance: FERROUS SULFATE
  11. PREDNISONE. [Concomitant]
     Active Substance: PREDNISONE
  12. LENVIMA [Suspect]
     Active Substance: LENVATINIB
     Route: 048
     Dates: end: 201604
  13. LENVIMA [Suspect]
     Active Substance: LENVATINIB
     Indication: THYROID CANCER
     Route: 048
     Dates: start: 20150914, end: 201510
  14. VITAMIN B-50 COMPLEX [Concomitant]
  15. PERCOCET [Concomitant]
     Active Substance: ACETAMINOPHEN\OXYCODONE HYDROCHLORIDE
  16. VITAMIN D [Concomitant]
     Active Substance: CHOLECALCIFEROL
  17. ONDANSETRON HCL [Concomitant]
     Active Substance: ONDANSETRON HYDROCHLORIDE
  18. LENVIMA [Suspect]
     Active Substance: LENVATINIB
     Route: 048
  19. TAMSULOSIN HCL [Concomitant]
     Active Substance: TAMSULOSIN
  20. GABAPENTIN. [Concomitant]
     Active Substance: GABAPENTIN
  21. LENVIMA [Suspect]
     Active Substance: LENVATINIB
     Route: 048
     Dates: start: 201604, end: 20160604
  22. FENOFIBRATE. [Concomitant]
     Active Substance: FENOFIBRATE
  23. LORAZEPAM. [Concomitant]
     Active Substance: LORAZEPAM
  24. CYCLOBENZAPRINE HCL [Concomitant]
     Active Substance: CYCLOBENZAPRINE HYDROCHLORIDE
  25. LEVOXYL [Concomitant]
     Active Substance: LEVOTHYROXINE SODIUM
  26. ENSURE [Concomitant]
     Active Substance: AMINO ACIDS\DEXTROSE\ELECTROLYTES NOS\SOYBEAN OIL\VITAMINS

REACTIONS (16)
  - Vomiting [Unknown]
  - Candida infection [Unknown]
  - Oropharyngeal pain [Unknown]
  - Diarrhoea [Unknown]
  - Decreased appetite [Unknown]
  - Cholelithiasis [Unknown]
  - Cystitis [Unknown]
  - Headache [Recovered/Resolved]
  - Hypertension [Unknown]
  - Pneumonia [Unknown]
  - Epistaxis [Unknown]
  - Asthenia [Unknown]
  - Fall [Unknown]
  - Altered state of consciousness [Unknown]
  - Gastroenteritis viral [Unknown]
  - Fatigue [Not Recovered/Not Resolved]

NARRATIVE: CASE EVENT DATE: 2015
